FAERS Safety Report 15715801 (Version 3)
Quarter: 2019Q1

REPORT INFORMATION
  Report Type: Spontaneous
  Country: US (occurrence: US)
  Receive Date: 20181212
  Receipt Date: 20190126
  Transmission Date: 20190417
  Serious: No
  Sender: FDA-Public Use
  Company Number: US-JNJFOC-20181139574

PATIENT
  Sex: Female

DRUGS (2)
  1. RAZADYNE ER [Suspect]
     Active Substance: GALANTAMINE HYDROBROMIDE
     Indication: PRODUCT USED FOR UNKNOWN INDICATION
     Route: 048
  2. GALANTAMINE HBR [Suspect]
     Active Substance: GALANTAMINE HYDROBROMIDE
     Indication: PRODUCT USED FOR UNKNOWN INDICATION
     Route: 048
     Dates: start: 2018

REACTIONS (3)
  - Drug ineffective [Unknown]
  - Product dose omission [Unknown]
  - Memory impairment [Unknown]

NARRATIVE: CASE EVENT DATE: 2018
